FAERS Safety Report 14787664 (Version 1)
Quarter: 2018Q2

REPORT INFORMATION
  Report Type: Spontaneous
  Country: ES (occurrence: ES)
  Receive Date: 20180421
  Receipt Date: 20180421
  Transmission Date: 20180711
  Serious: Yes (Hospitalization)
  Sender: FDA-Public Use
  Company Number: ES-AUROBINDO-AUR-APL-2018-020808

PATIENT
  Age: 85 Year
  Sex: Female

DRUGS (5)
  1. QUETIAPINE 25MG [Suspect]
     Active Substance: QUETIAPINE
     Indication: PRODUCT USED FOR UNKNOWN INDICATION
     Dosage: 0-0-1
     Route: 048
     Dates: start: 20150828
  2. SERTRALINA                         /01011401/ [Interacting]
     Active Substance: SERTRALINE HYDROCHLORIDE
     Indication: PRODUCT USED FOR UNKNOWN INDICATION
     Dosage: 50 MG DIA
     Route: 048
     Dates: start: 20150828, end: 20170617
  3. PREDNISON [Concomitant]
     Active Substance: PREDNISONE
     Indication: PRODUCT USED FOR UNKNOWN INDICATION
     Dosage: 1 CP DIAS ALTERNOS CON 1/2 CP
     Route: 048
     Dates: start: 20140101
  4. SINEMET PLUS [Interacting]
     Active Substance: CARBIDOPA\LEVODOPA
     Indication: PRODUCT USED FOR UNKNOWN INDICATION
     Dosage: 1-1/2-1
     Route: 048
     Dates: start: 20150828
  5. BONVIVA [Concomitant]
     Active Substance: IBANDRONATE SODIUM
     Indication: PRODUCT USED FOR UNKNOWN INDICATION
     Dosage: 150 MG AL MES
     Route: 065
     Dates: start: 20140101

REACTIONS (2)
  - Acute kidney injury [Recovered/Resolved]
  - Dehydration [Recovered/Resolved]

NARRATIVE: CASE EVENT DATE: 20170617
